FAERS Safety Report 19519714 (Version 1)
Quarter: 2021Q3

REPORT INFORMATION
  Report Type: Spontaneous
  Country: RU (occurrence: RU)
  Receive Date: 20210712
  Receipt Date: 20210712
  Transmission Date: 20211014
  Serious: Yes (Death)
  Sender: FDA-Public Use
  Company Number: RU-TEVA-2021-RU-1931855

PATIENT
  Age: 43 Year
  Sex: Female

DRUGS (1)
  1. PACLITAXEL?TEVA [Suspect]
     Active Substance: PACLITAXEL
     Route: 065

REACTIONS (1)
  - Pulmonary embolism [Fatal]
